FAERS Safety Report 15501382 (Version 4)
Quarter: 2018Q4

REPORT INFORMATION
  Report Type: Report from Study
  Country: MX (occurrence: MX)
  Receive Date: 20181015
  Receipt Date: 20181022
  Transmission Date: 20190205
  Serious: Yes (Other)
  Sender: FDA-Public Use
  Company Number: PHHY2018MX125447

PATIENT
  Sex: Male
  Weight: 77 kg

DRUGS (3)
  1. EXELON PATCH [Suspect]
     Active Substance: RIVASTIGMINE
     Dosage: 9.5 MG, QD PATCH 10 (CM2)
     Route: 062
     Dates: start: 20181012
  2. EXELON PATCH [Suspect]
     Active Substance: RIVASTIGMINE
     Indication: DEMENTIA
     Dosage: 9.5 MG, BIW PATCH 10 (CM2) (3 MONTHS AGO)
     Route: 062
  3. RISPERIDONE. [Concomitant]
     Active Substance: RISPERIDONE
     Indication: ANXIETY
     Dosage: 3 DF, QD
     Route: 048
     Dates: start: 20181009

REACTIONS (2)
  - Inappropriate schedule of product administration [Recovered/Resolved]
  - Dementia [Recovering/Resolving]
